FAERS Safety Report 20345352 (Version 1)
Quarter: 2022Q1

REPORT INFORMATION
  Report Type: Spontaneous
  Country: PL (occurrence: PL)
  Receive Date: 20220118
  Receipt Date: 20220118
  Transmission Date: 20220423
  Serious: Yes (Hospitalization, Other)
  Sender: FDA-Public Use
  Company Number: PL-GEN-2021-1503

PATIENT
  Age: 17 Year
  Sex: Female

DRUGS (6)
  1. ARIPIPRAZOLE [Suspect]
     Active Substance: ARIPIPRAZOLE
     Indication: Schizophrenia
     Dosage: 30 MILLIGRAM, QD
  2. SERTRALINE [Suspect]
     Active Substance: SERTRALINE HYDROCHLORIDE
     Indication: Schizophrenia
     Dosage: 50 MILLIGRAM, QD
  3. SERTRALINE [Suspect]
     Active Substance: SERTRALINE HYDROCHLORIDE
     Dosage: 150 MILLIGRAM, QD
  4. OLANZAPINE [Suspect]
     Active Substance: OLANZAPINE
     Indication: Schizophrenia
     Dosage: 20 MILLIGRAM, QD
  5. FLUOXETINE [Suspect]
     Active Substance: FLUOXETINE HYDROCHLORIDE
     Indication: Schizophrenia
     Dosage: 20 MILLIGRAM, QD
  6. PERPHENAZINE [Suspect]
     Active Substance: PERPHENAZINE
     Indication: Schizophrenia
     Dosage: 200 MILLIGRAM, QD

REACTIONS (19)
  - Drug ineffective [Recovering/Resolving]
  - Disturbance in attention [Recovering/Resolving]
  - Enuresis [Recovering/Resolving]
  - Tremor [Recovering/Resolving]
  - Abnormal behaviour [Recovering/Resolving]
  - Asocial behaviour [Recovering/Resolving]
  - Flat affect [Recovering/Resolving]
  - Suicidal ideation [Recovering/Resolving]
  - Extrapyramidal disorder [Recovering/Resolving]
  - Anxiety [Recovering/Resolving]
  - Hallucination, auditory [Recovering/Resolving]
  - Negative thoughts [Recovering/Resolving]
  - Initial insomnia [Recovering/Resolving]
  - Depressed mood [Recovering/Resolving]
  - Memory impairment [Recovering/Resolving]
  - Akathisia [Recovering/Resolving]
  - Ideas of reference [Recovering/Resolving]
  - Weight increased [Recovering/Resolving]
  - Soliloquy [Recovering/Resolving]
